FAERS Safety Report 10176638 (Version 2)
Quarter: 2014Q2

REPORT INFORMATION
  Report Type: Spontaneous
  Country: US (occurrence: US)
  Receive Date: 20140516
  Receipt Date: 20140527
  Transmission Date: 20141212
  Serious: Yes (Hospitalization)
  Sender: FDA-Public Use
  Company Number: US-BAXTER-2014BAX024269

PATIENT
  Age: 57 Year
  Sex: Male

DRUGS (4)
  1. DIANEAL LOW CALCIUM [Suspect]
     Indication: RENAL FAILURE CHRONIC
     Route: 033
  2. DIANEAL LOW CALCIUM [Suspect]
     Route: 033
  3. EXTRANEAL [Suspect]
     Indication: RENAL FAILURE CHRONIC
     Route: 033
  4. EXTRANEAL [Suspect]
     Route: 033

REACTIONS (1)
  - Hernia [Recovered/Resolved]
